FAERS Safety Report 25626314 (Version 4)
Quarter: 2025Q3

REPORT INFORMATION
  Report Type: Spontaneous
  Country: US (occurrence: US)
  Receive Date: 20250731
  Receipt Date: 20250823
  Transmission Date: 20251021
  Serious: Yes (Life-Threatening, Hospitalization, Other)
  Sender: HIKMA
  Company Number: US-HIKMA PHARMACEUTICALS USA INC.-US-H14001-25-08886

PATIENT
  Age: 24 Year
  Sex: Male

DRUGS (12)
  1. BLEOMYCIN [Suspect]
     Active Substance: BLEOMYCIN SULFATE
     Indication: Metastatic choriocarcinoma
     Dosage: 15 MILLIGRAM, QD
     Route: 065
  2. BLEOMYCIN [Suspect]
     Active Substance: BLEOMYCIN SULFATE
     Indication: Metastases to liver
  3. BLEOMYCIN [Suspect]
     Active Substance: BLEOMYCIN SULFATE
     Indication: Metastases to lung
  4. CISPLATIN [Suspect]
     Active Substance: CISPLATIN
  5. ETOPOSIDE [Suspect]
     Active Substance: ETOPOSIDE
  6. ETOPOSIDE [Suspect]
     Active Substance: ETOPOSIDE
     Indication: Metastases to lung
     Route: 065
  7. ETOPOSIDE [Suspect]
     Active Substance: ETOPOSIDE
     Indication: Metastases to liver
  8. ETOPOSIDE [Suspect]
     Active Substance: ETOPOSIDE
     Indication: Metastatic choriocarcinoma
  9. CISPLATIN [Suspect]
     Active Substance: CISPLATIN
     Indication: Metastatic choriocarcinoma
     Route: 065
  10. CISPLATIN [Suspect]
     Active Substance: CISPLATIN
     Indication: Metastases to liver
  11. CISPLATIN [Suspect]
     Active Substance: CISPLATIN
     Indication: Metastases to lung
  12. GRANULOCYTE COLONY-STIMULATING FACTOR NOS [Concomitant]
     Active Substance: GRANULOCYTE COLONY-STIMULATING FACTOR NOS
     Indication: Product used for unknown indication
     Route: 065

REACTIONS (10)
  - Choriocarcinoma [Recovering/Resolving]
  - Hepatic lesion [Recovered/Resolved]
  - Haemoptysis [Recovered/Resolved]
  - Hypoxia [Recovered/Resolved]
  - Lung opacity [Recovered/Resolved]
  - Pulmonary alveolar haemorrhage [Recovered/Resolved]
  - Tumour haemorrhage [Recovering/Resolving]
  - Tumour lysis syndrome [Recovering/Resolving]
  - Respiratory failure [Recovering/Resolving]
  - Melaena [Recovering/Resolving]
